FAERS Safety Report 5288304-4 (Version None)
Quarter: 2007Q1

REPORT INFORMATION
  Report Type: 
  Country: None (occurrence: None)
  Receive Date: 20070116
  Receipt Date: 20060412
  Transmission Date: 20070707
  Serious: No
  Sender: FDA-Public Use
  Company Number: FEI2006-0394

PATIENT
  Age: 34 Year
  Sex: Female
  Weight: 61.2356 kg

DRUGS (2)
  1. INTRAUTERINE COPPER CONTRACEPTIVE [Suspect]
     Indication: CONTRACEPTION
     Dosage: INTRA-UTERINE
     Route: 015
     Dates: start: 20041027, end: 20060313
  2. MULTI-VITAMINS [Concomitant]

REACTIONS (3)
  - METRORRHAGIA [None]
  - RUPTURED ECTOPIC PREGNANCY [None]
  - UNINTENDED PREGNANCY [None]
